FAERS Safety Report 14101564 (Version 1)
Quarter: 2017Q4

REPORT INFORMATION
  Report Type: Spontaneous
  Country: US (occurrence: US)
  Receive Date: 20171017
  Receipt Date: 20171017
  Transmission Date: 20180321
  Serious: Yes (Other)
  Sender: FDA-Public Use
  Company Number: None

PATIENT
  Age: 63 Year
  Sex: Female
  Weight: 63 kg

DRUGS (1)
  1. ESTRACE [Suspect]
     Active Substance: ESTRADIOL
     Indication: ATROPHIC VULVOVAGINITIS
     Dosage: ?          QUANTITY:1 INTRAVAGINALLY;OTHER FREQUENCY:TWICE WEEKLY;?
     Route: 067
     Dates: start: 20170922, end: 20171017

REACTIONS (3)
  - Abdominal pain [None]
  - Nausea [None]
  - Headache [None]

NARRATIVE: CASE EVENT DATE: 20171017
